FAERS Safety Report 8307423-9 (Version None)
Quarter: 2012Q2

REPORT INFORMATION
  Report Type: 
  Country: None (occurrence: None)
  Receive Date: 20120424
  Receipt Date: 20120413
  Transmission Date: 20120825
  Serious: Yes (Other)
  Sender: FDA-Public Use
  Company Number: JP-SANOFI-AVENTIS-2012SA027838

PATIENT
  Age: 50 Year
  Sex: Female

DRUGS (19)
  1. LEXOTAN [Concomitant]
     Route: 048
     Dates: end: 20120109
  2. CYMBALTA [Concomitant]
     Route: 048
     Dates: end: 20120109
  3. EPINASTINE HYDROCHLORIDE [Concomitant]
     Route: 048
     Dates: end: 20120109
  4. SEROQUEL [Suspect]
     Indication: SCHIZOPHRENIA
     Route: 048
  5. PENTOBARBITAL CAP [Concomitant]
     Route: 048
  6. DESYREL [Concomitant]
     Route: 048
     Dates: end: 20120109
  7. DEPAKENE [Concomitant]
     Route: 048
     Dates: end: 20120109
  8. DEPAKENE [Concomitant]
     Route: 048
     Dates: start: 20120110
  9. ZYPREXA [Concomitant]
     Route: 048
     Dates: start: 20120110
  10. HIRNAMIN [Concomitant]
     Route: 048
     Dates: end: 20120109
  11. PROMETHAZINE HCL [Concomitant]
     Route: 048
     Dates: end: 20120109
  12. ZOLPIDEM [Suspect]
     Route: 048
     Dates: end: 20120109
  13. TETRAMIDE [Concomitant]
     Route: 048
     Dates: end: 20120109
  14. ABILIFY [Concomitant]
     Route: 048
     Dates: start: 20120110
  15. LITHIUM CARBONATE [Concomitant]
     Route: 048
     Dates: end: 20120109
  16. AMOBAN [Concomitant]
     Route: 048
  17. ANTIPSYCHOTICS [Concomitant]
     Route: 048
     Dates: end: 20120109
  18. SILECE [Concomitant]
     Route: 048
     Dates: end: 20120109
  19. DEPAS [Concomitant]
     Route: 048
     Dates: end: 20120109

REACTIONS (3)
  - RESPIRATORY DEPRESSION [None]
  - AMNESIA [None]
  - WEIGHT INCREASED [None]
